FAERS Safety Report 6468946-0 (Version None)
Quarter: 2009Q4

REPORT INFORMATION
  Report Type: 
  Country: None (occurrence: None)
  Receive Date: 20091119
  Receipt Date: 20090825
  Transmission Date: 20100525
  Serious: No
  Sender: FDA-Public Use
  Company Number: WAES 0908USA04242

PATIENT
  Age: 37 Year
  Sex: Male
  Weight: 90.7194 kg

DRUGS (5)
  1. JANUVIA [Suspect]
     Indication: DIABETES MELLITUS
     Dosage: 100 MG/DAILY/PO
     Route: 048
     Dates: start: 20090825, end: 20090825
  2. TOPROL-XL [Concomitant]
  3. DILTIAZEM HYDROCHLORIDE [Concomitant]
  4. LISINOPRIL [Concomitant]
  5. METFORMIN [Concomitant]

REACTIONS (4)
  - DYSPNOEA [None]
  - HEART RATE INCREASED [None]
  - PARAESTHESIA ORAL [None]
  - SWOLLEN TONGUE [None]
